FAERS Safety Report 9862137 (Version 3)
Quarter: 2014Q2

REPORT INFORMATION
  Report Type: Report from Study
  Country: US (occurrence: US)
  Receive Date: 20140203
  Receipt Date: 20140626
  Transmission Date: 20141212
  Serious: Yes (Life-Threatening, Hospitalization)
  Sender: FDA-Public Use
  Company Number: US-ROCHE-1328108

PATIENT
  Age: 34 Year
  Sex: Female

DRUGS (50)
  1. RANIBIZUMAB [Suspect]
     Indication: DIABETIC RETINOPATHY
     Dosage: LEFT EYE
     Route: 065
     Dates: start: 20120612
  2. RANIBIZUMAB [Suspect]
     Dosage: LEFT EYE
     Route: 065
     Dates: start: 20120925
  3. RANIBIZUMAB [Suspect]
     Dosage: LEFT EYE
     Route: 065
     Dates: start: 20121127
  4. RANIBIZUMAB [Suspect]
     Dosage: LEFT EYE
     Route: 065
     Dates: start: 20130116
  5. RANIBIZUMAB [Suspect]
     Dosage: LEFT EYE
     Route: 065
     Dates: start: 20130219
  6. RANIBIZUMAB [Suspect]
     Dosage: LEFT EYE
     Route: 065
     Dates: start: 20130402
  7. RANIBIZUMAB [Suspect]
     Dosage: LEFT EYE
     Route: 065
     Dates: start: 20130430
  8. RANIBIZUMAB [Suspect]
     Dosage: LEFT EYE
     Route: 065
     Dates: start: 20130528
  9. RANIBIZUMAB [Suspect]
     Dosage: LEFT EYE
     Route: 065
     Dates: start: 20130709
  10. RANIBIZUMAB [Suspect]
     Dosage: LEFT EYE
     Route: 065
     Dates: start: 20130816
  11. RANIBIZUMAB [Suspect]
     Dosage: LEFT EYE
     Route: 065
     Dates: start: 20130917
  12. RANIBIZUMAB [Suspect]
     Dosage: LEFT EYE
     Route: 065
     Dates: start: 20131108
  13. RANIBIZUMAB [Suspect]
     Dosage: LEFT EYE
     Route: 065
     Dates: start: 20131210
  14. RANIBIZUMAB [Suspect]
     Dosage: LEFT EYE
     Route: 065
     Dates: start: 20140114
  15. RANIBIZUMAB [Suspect]
     Dosage: LEFT EYE
     Route: 065
     Dates: start: 20140328
  16. RANIBIZUMAB [Suspect]
     Dosage: LEFT EYE
     Route: 065
     Dates: start: 20140430
  17. BEVACIZUMAB [Suspect]
     Indication: AGE-RELATED MACULAR DEGENERATION
     Dosage: ONE TIME TREATMENT
     Route: 050
     Dates: start: 20120711
  18. COREG [Concomitant]
     Route: 048
     Dates: start: 20140114
  19. ATROPINE SULFATE [Concomitant]
     Dosage: ROUTE:GTT,?1% GTT
     Route: 065
     Dates: start: 20120717
  20. CYMBALTA [Concomitant]
     Route: 048
  21. CLONIDINE [Concomitant]
     Route: 048
  22. ZYLET [Concomitant]
     Dosage: 0.3-0.5% GTT DROPS,?ROUTE GTT.
     Route: 065
     Dates: start: 20120716
  23. ZYLET [Concomitant]
     Dosage: 0.3-0.5% GTT DROPS,?ROUTE GTT.
     Route: 065
     Dates: start: 20130812
  24. ZYLET [Concomitant]
     Dosage: 1/GTT DROPS?ROUTE:GTT
     Route: 065
     Dates: start: 20140120
  25. ATROPINE [Concomitant]
     Dosage: ROUTE: GTT,?1% GTT-DROPS
     Route: 065
     Dates: start: 20130812
  26. REGLAN [Concomitant]
     Dosage: } 1 PER DAY
     Route: 048
     Dates: start: 20131029
  27. ENBREL [Concomitant]
     Route: 058
  28. LASIX [Concomitant]
     Route: 048
  29. LASIX [Concomitant]
     Route: 048
     Dates: start: 20140114
  30. SPIRONOLACTONE [Concomitant]
     Route: 048
  31. FERROUS SULFATE [Concomitant]
     Route: 048
  32. PROCRIT [Concomitant]
     Route: 058
  33. NABUMETONE [Concomitant]
     Route: 048
  34. THYROXIN [Concomitant]
     Route: 048
  35. NEURONTIN (UNITED STATES) [Concomitant]
     Route: 048
  36. DUREZOL [Concomitant]
     Dosage: ROUTE: GTT
     Route: 065
     Dates: start: 20120810
  37. DUREZOL [Concomitant]
     Dosage: ROUTE: GTT
     Route: 065
     Dates: start: 20140120
  38. ACETAMINOPHEN [Concomitant]
     Route: 048
  39. INSULIN LISPRO [Concomitant]
     Route: 058
  40. INSULIN DETEMIR [Concomitant]
     Route: 058
  41. LISINOPRIL [Concomitant]
     Route: 048
  42. AMLODIPINE [Concomitant]
     Route: 048
     Dates: start: 20120712
  43. LOSARTAN [Concomitant]
     Route: 048
  44. PROCARDIA (UNITED STATES) [Concomitant]
     Route: 048
     Dates: start: 20121119
  45. LANTUS [Concomitant]
     Dosage: 100/UNITS
     Route: 058
  46. LEVOTHYROXINE SODIUM [Concomitant]
     Route: 048
  47. FLONASE [Concomitant]
     Dosage: 1/PUFF
     Route: 045
     Dates: start: 20140513
  48. CARDENE IV [Concomitant]
     Route: 042
     Dates: start: 20140507
  49. AMITRIPTYLINE [Concomitant]
     Route: 048
  50. PRAVASTATIN [Concomitant]
     Route: 048

REACTIONS (5)
  - Diabetic ketoacidosis [Recovered/Resolved]
  - Impaired gastric emptying [Not Recovered/Not Resolved]
  - Hypoglycaemia [Recovered/Resolved]
  - Gastroenteritis [Recovered/Resolved]
  - Hypertension [Recovered/Resolved]
